FAERS Safety Report 11389272 (Version 2)
Quarter: 2015Q3

REPORT INFORMATION
  Report Type: Spontaneous
  Country: US (occurrence: US)
  Receive Date: 20150817
  Receipt Date: 20150828
  Transmission Date: 20151125
  Serious: Yes (Hospitalization)
  Sender: FDA-Public Use
  Company Number: US-VERTEX PHARMACEUTICALS-2015-003231

PATIENT
  Age: 21 Year
  Sex: Male

DRUGS (8)
  1. BETHKIS [Concomitant]
     Active Substance: TOBRAMYCIN
  2. SPIRIVA [Concomitant]
     Active Substance: TIOTROPIUM BROMIDE MONOHYDRATE
  3. DOXYCYCLINE. [Concomitant]
     Active Substance: DOXYCYCLINE
  4. FERROUS SULFATE [Concomitant]
     Active Substance: FERROUS SULFATE\FERROUS SULFATE, DRIED
  5. TOBI [Concomitant]
     Active Substance: TOBRAMYCIN
  6. VITAMIN D [Concomitant]
     Active Substance: CHOLECALCIFEROL
  7. PULMOZYME [Concomitant]
     Active Substance: DORNASE ALFA
  8. ORKAMBI [Suspect]
     Active Substance: IVACAFTOR\LUMACAFTOR
     Indication: CYSTIC FIBROSIS
     Dosage: 200 MG/125 MG BID
     Route: 048
     Dates: start: 20150723

REACTIONS (1)
  - Cystic fibrosis respiratory infection suppression [Unknown]

NARRATIVE: CASE EVENT DATE: 20150805
